FAERS Safety Report 16495207 (Version 1)
Quarter: 2019Q2

REPORT INFORMATION
  Report Type: Spontaneous
  Country: IT (occurrence: IT)
  Receive Date: 20190628
  Receipt Date: 20190628
  Transmission Date: 20190711
  Serious: Yes (Hospitalization)
  Sender: FDA-Public Use
  Company Number: IT-CELGENEUS-ITA-20190607338

PATIENT
  Age: 14 Year
  Sex: Male

DRUGS (2)
  1. THALIDOMIDE [Suspect]
     Active Substance: THALIDOMIDE
     Indication: OFF LABEL USE
  2. THALIDOMIDE [Suspect]
     Active Substance: THALIDOMIDE
     Indication: INFLAMMATORY BOWEL DISEASE
     Route: 048

REACTIONS (1)
  - Schizoaffective disorder [Unknown]
